FAERS Safety Report 25270789 (Version 1)
Quarter: 2025Q2

REPORT INFORMATION
  Report Type: Spontaneous
  Country: US (occurrence: US)
  Receive Date: 20250505
  Receipt Date: 20250505
  Transmission Date: 20250717
  Serious: No
  Sender: MERCK SHARP & DOHME LLC
  Company Number: US-009507513-2281347

PATIENT
  Age: 86 Year
  Sex: Female
  Weight: 45.359 kg

DRUGS (2)
  1. INVANZ [Suspect]
     Active Substance: ERTAPENEM SODIUM
     Indication: Pasteurella infection
     Route: 042
  2. ERTAPENEM SODIUM [Suspect]
     Active Substance: ERTAPENEM SODIUM
     Indication: Pasteurella infection
     Route: 041
     Dates: start: 20250424

REACTIONS (4)
  - Feeling abnormal [Unknown]
  - Gait inability [Unknown]
  - Pain [Unknown]
  - Hypoacusis [Unknown]

NARRATIVE: CASE EVENT DATE: 20250424
